FAERS Safety Report 6793398-0 (Version None)
Quarter: 2010Q2

REPORT INFORMATION
  Report Type: 
  Country: None (occurrence: None)
  Receive Date: 20100624
  Receipt Date: 20100325
  Transmission Date: 20101027
  Serious: Yes (Other)
  Sender: FDA-Public Use
  Company Number: US-MYLANLABS-2010S1001955

PATIENT
  Age: 75 Year
  Sex: Female

DRUGS (4)
  1. CLOZAPINE [Suspect]
     Indication: BIPOLAR DISORDER
     Route: 048
     Dates: end: 20100201
  2. CITALOPRAM [Concomitant]
     Indication: DEPRESSION
     Route: 048
  3. METFORMIN HCL [Concomitant]
     Indication: TYPE 2 DIABETES MELLITUS
     Route: 048
  4. ZYPREXA [Concomitant]
     Indication: BIPOLAR DISORDER
     Route: 048
     Dates: start: 20100201

REACTIONS (1)
  - GRANULOCYTOPENIA [None]
